FAERS Safety Report 10007147 (Version 1)
Quarter: 2014Q1

REPORT INFORMATION
  Report Type: Spontaneous
  Country: US (occurrence: None)
  Receive Date: 20140312
  Receipt Date: 20140312
  Transmission Date: 20141002
  Serious: Yes (Hospitalization)
  Sender: FDA-Public Use
  Company Number: None

PATIENT
  Age: 34 Year
  Sex: Female
  Weight: 94 kg

DRUGS (8)
  1. COSYNTROPIN [Suspect]
     Indication: ACTH STIMULATION TEST
     Route: 042
  2. HYDROCODONE/ACETAMINOPHEN [Concomitant]
  3. PREDNISONE [Concomitant]
  4. LEFLUNOMIDE [Concomitant]
  5. LEVOTHYROXINE [Concomitant]
  6. SULINDAC [Concomitant]
  7. METOPROLOL [Concomitant]
  8. ALBUTEROL [Concomitant]

REACTIONS (5)
  - Chest discomfort [None]
  - Tachycardia [None]
  - Dyspnoea [None]
  - Hypertension [None]
  - Anxiety [None]
